FAERS Safety Report 24722939 (Version 3)
Quarter: 2025Q1

REPORT INFORMATION
  Report Type: Spontaneous
  Country: IL (occurrence: IL)
  Receive Date: 20241211
  Receipt Date: 20250108
  Transmission Date: 20250409
  Serious: No
  Sender: PFIZER
  Company Number: IL-PFIZER INC-202400308765

PATIENT
  Age: 8 Year
  Sex: Male

DRUGS (1)
  1. NGENLA [Suspect]
     Active Substance: SOMATROGON-GHLA
     Dosage: UNK, WEEKLY (ONCE A WEEK)
     Route: 058

REACTIONS (2)
  - Device physical property issue [Unknown]
  - Incorrect dose administered by device [Unknown]
